FAERS Safety Report 4314138-0 (Version None)
Quarter: 2004Q1

REPORT INFORMATION
  Report Type: 
  Country: None (occurrence: None)
  Receive Date: 20040308
  Receipt Date: 20040308
  Transmission Date: 20041129
  Serious: Yes (Hospitalization)
  Sender: FDA-Public Use
  Company Number: None

PATIENT
  Sex: Male
  Weight: 74 kg

DRUGS (13)
  1. SIMVASTATIN [Suspect]
     Indication: DYSLIPIDAEMIA
     Dosage: 80 MG HS ORAL
     Route: 048
     Dates: start: 19981023, end: 20031224
  2. GEMFIBROZIL [Suspect]
     Indication: DYSLIPIDAEMIA
     Dosage: 600 MG BID ORAL
     Route: 048
     Dates: start: 19950711, end: 20031224
  3. ALBUTEROL/IPRATROP [Concomitant]
  4. AMIODARONE HCL [Concomitant]
  5. ARTIFICIAL TEARS POLYVINYL ALCOHOL [Concomitant]
  6. AZITHROMYCIN [Concomitant]
  7. FELODIPINE [Concomitant]
  8. HYDROCHLOROTHIAZIDE [Concomitant]
  9. IRBESARTAN [Concomitant]
  10. LEVOFLOXACIN [Concomitant]
  11. NITROGLYCERIN [Concomitant]
  12. POTASSIUM CHLORIDE [Concomitant]
  13. RANITIDINE HCL [Concomitant]

REACTIONS (3)
  - HEPATITIS [None]
  - RENAL FAILURE ACUTE [None]
  - RHABDOMYOLYSIS [None]
